FAERS Safety Report 14411744 (Version 1)
Quarter: 2018Q1

REPORT INFORMATION
  Report Type: Spontaneous
  Country: US (occurrence: US)
  Receive Date: 20180119
  Receipt Date: 20180119
  Transmission Date: 20180509
  Serious: No
  Sender: FDA-Public Use
  Company Number: US-PERRIGO-17US030183

PATIENT
  Age: 1 Year
  Sex: Male
  Weight: 11.34 kg

DRUGS (3)
  1. COUGH AND COLD PREPARATIONS [Concomitant]
     Active Substance: UNSPECIFIED INGREDIENT
     Indication: COUGH
     Dosage: UNKNOWN, UNKNOWN
     Route: 065
     Dates: start: 201710
  2. IBUPROFEN. [Suspect]
     Active Substance: IBUPROFEN
     Indication: PYREXIA
     Dosage: UNKNOWN, PRN
     Route: 048
     Dates: start: 2016
  3. IBUPROFEN. [Suspect]
     Active Substance: IBUPROFEN
     Indication: ACCIDENTAL EXPOSURE TO PRODUCT BY CHILD
     Dosage: APPROX. 3.75ML, SINGLE
     Route: 048
     Dates: start: 20171115, end: 20171115

REACTIONS (1)
  - Accidental exposure to product by child [Recovered/Resolved]

NARRATIVE: CASE EVENT DATE: 20171115
